FAERS Safety Report 4658927-1 (Version None)
Quarter: 2005Q2

REPORT INFORMATION
  Report Type: 
  Country: None (occurrence: None)
  Receive Date: 20050509
  Receipt Date: 20050426
  Transmission Date: 20051028
  Serious: Yes (Hospitalization)
  Sender: FDA-Public Use
  Company Number: 05P-062-0298829-00

PATIENT
  Age: 56 Year
  Sex: Male
  Weight: 75 kg

DRUGS (4)
  1. HUMIRA [Suspect]
     Indication: RHEUMATOID ARTHRITIS
     Dosage: 40 MG, 1 IN 2 WK , SUBCUTANEOUS
     Route: 058
     Dates: start: 20031027
  2. METHOTREXATE [Concomitant]
  3. INDOMETHACIN [Concomitant]
  4. PREDNISOLONE [Concomitant]

REACTIONS (3)
  - CEREBRAL ISCHAEMIA [None]
  - ELECTROCARDIOGRAM ST-T CHANGE [None]
  - HYPERTENSIVE HEART DISEASE [None]
